FAERS Safety Report 9002045 (Version 1)
Quarter: 2013Q1

REPORT INFORMATION
  Report Type: Spontaneous
  Country: GB (occurrence: GB)
  Receive Date: 20130107
  Receipt Date: 20130107
  Transmission Date: 20140127
  Serious: Yes (Hospitalization, Other)
  Sender: FDA-Public Use
  Company Number: GB-ASTRAZENECA-2012SE96394

PATIENT
  Age: 20819 Day
  Sex: Male
  Weight: 95 kg

DRUGS (6)
  1. TICAGRELOR [Suspect]
     Indication: ACUTE CORONARY SYNDROME
     Route: 048
     Dates: start: 20121207, end: 20121208
  2. ASPIRIN [Concomitant]
  3. ATORVASTATIN [Concomitant]
  4. BISOPROLOL [Concomitant]
  5. CANDESARTAN [Concomitant]
  6. CLOPIDOGREL [Concomitant]

REACTIONS (6)
  - Blood gases abnormal [Unknown]
  - C-reactive protein increased [Unknown]
  - Hypoxia [Recovered/Resolved]
  - Oxygen saturation decreased [Unknown]
  - Pericarditis [Unknown]
  - Dyspnoea [Recovered/Resolved]
